FAERS Safety Report 8517327-4 (Version None)
Quarter: 2012Q3

REPORT INFORMATION
  Report Type: 
  Country: None (occurrence: None)
  Receive Date: 20120718
  Receipt Date: 20120716
  Transmission Date: 20120928
  Serious: Yes (Death)
  Sender: FDA-Public Use
  Company Number: US-PFIZER INC-2012136913

PATIENT

DRUGS (1)
  1. PROTONIX [Suspect]
     Dosage: 40 MG, UNK

REACTIONS (1)
  - DEATH [None]
